FAERS Safety Report 15840689 (Version 6)
Quarter: 2021Q2

REPORT INFORMATION
  Report Type: Spontaneous
  Country: US (occurrence: US)
  Receive Date: 20190118
  Receipt Date: 20210505
  Transmission Date: 20210716
  Serious: No
  Sender: FDA-Public Use
  Company Number: US-AMGEN-USASP2019007370

PATIENT
  Age: 29 Year
  Sex: Female

DRUGS (1)
  1. ETANERCEPT [Suspect]
     Active Substance: ETANERCEPT
     Indication: NEUROCYSTICERCOSIS
     Dosage: 50 MILLIGRAM
     Route: 065

REACTIONS (1)
  - Pain in extremity [Unknown]
